FAERS Safety Report 14684233 (Version 22)
Quarter: 2022Q3

REPORT INFORMATION
  Report Type: Report from Study
  Country: CA (occurrence: CA)
  Receive Date: 20180327
  Receipt Date: 20220729
  Transmission Date: 20221027
  Serious: Yes (Hospitalization, Other)
  Sender: FDA-Public Use
  Company Number: PHHY2016CA017720

PATIENT
  Age: 62 Year
  Sex: Female

DRUGS (31)
  1. SANDOSTATIN LAR DEPOT [Suspect]
     Active Substance: OCTREOTIDE ACETATE
     Indication: Pancreatitis chronic
     Dosage: 30 MG, QMO
     Route: 030
     Dates: start: 20090105
  2. SANDOSTATIN LAR DEPOT [Suspect]
     Active Substance: OCTREOTIDE ACETATE
     Dosage: 20 MG, QMO
     Route: 030
     Dates: start: 20160525
  3. SANDOSTATIN LAR DEPOT [Suspect]
     Active Substance: OCTREOTIDE ACETATE
     Dosage: 30 MG, QMO
     Route: 030
     Dates: start: 20160621
  4. SANDOSTATIN LAR DEPOT [Suspect]
     Active Substance: OCTREOTIDE ACETATE
     Dosage: UNK
     Route: 065
  5. CODEINE PHOSPHATE [Suspect]
     Active Substance: CODEINE PHOSPHATE
     Indication: Product used for unknown indication
     Dosage: UNK
     Route: 065
  6. METFORMIN [Suspect]
     Active Substance: METFORMIN HYDROCHLORIDE
     Indication: Type 2 diabetes mellitus
     Dosage: 500 MG, TID
     Route: 048
     Dates: start: 201708
  7. METFORMIN [Suspect]
     Active Substance: METFORMIN HYDROCHLORIDE
     Dosage: UNK, TID
     Route: 048
     Dates: start: 201708
  8. ATROPINE SULFATE [Suspect]
     Active Substance: ATROPINE SULFATE
     Indication: Product used for unknown indication
     Dosage: UNK
     Route: 065
  9. BISOPROLOL [Suspect]
     Active Substance: BISOPROLOL
     Indication: Product used for unknown indication
     Dosage: 5 MG, QD
     Route: 065
  10. MIRTAZAPINE [Suspect]
     Active Substance: MIRTAZAPINE
     Indication: Product used for unknown indication
     Dosage: 15 MG, QD (STOPPED 3 WEEKS AGO)
     Route: 048
  11. MIRTAZAPINE [Suspect]
     Active Substance: MIRTAZAPINE
     Dosage: UNK, QD
     Route: 065
  12. SYNTHROID [Concomitant]
     Active Substance: LEVOTHYROXINE SODIUM
     Indication: Product used for unknown indication
     Dosage: 112 MG
     Route: 065
  13. SYNTHROID [Concomitant]
     Active Substance: LEVOTHYROXINE SODIUM
     Dosage: 125 UNK, QD (MCG/CO)
     Route: 065
  14. SYNTHROID [Concomitant]
     Active Substance: LEVOTHYROXINE SODIUM
     Dosage: UNK, QD (STRENGTH 125 UG)
     Route: 065
  15. ASPIRIN [Concomitant]
     Active Substance: ASPIRIN
     Indication: Product used for unknown indication
     Dosage: 80 MG
     Route: 065
  16. ROSUVASTATIN [Concomitant]
     Active Substance: ROSUVASTATIN
     Indication: Blood cholesterol
     Dosage: 10 MG, QD
     Route: 065
  17. CLONAZEPAM [Concomitant]
     Active Substance: CLONAZEPAM
     Indication: Product used for unknown indication
     Dosage: 0.5 MG
     Route: 065
  18. COTAZYM [Concomitant]
     Active Substance: PANCRELIPASE AMYLASE\PANCRELIPASE LIPASE\PANCRELIPASE PROTEASE
     Indication: Product used for unknown indication
     Dosage: 25000 IU
     Route: 065
  19. ZOPICLONE [Concomitant]
     Active Substance: ZOPICLONE
     Indication: Product used for unknown indication
     Dosage: 7.5 MG
     Route: 065
  20. DOCUSATE SODIUM [Concomitant]
     Active Substance: DOCUSATE SODIUM
     Indication: Product used for unknown indication
     Dosage: 100 MG
     Route: 065
  21. CIPRALEX [Concomitant]
     Active Substance: ESCITALOPRAM OXALATE
     Indication: Product used for unknown indication
     Dosage: UNK, QD (1/2 TABLET)
     Route: 065
  22. CIPRALEX [Concomitant]
     Active Substance: ESCITALOPRAM OXALATE
     Dosage: 1 DOSAGE FORM, QD
     Route: 048
     Dates: start: 2020
  23. CALCIUM [Concomitant]
     Active Substance: CALCIUM
     Indication: Product used for unknown indication
     Dosage: 2 DF, QD
     Route: 065
  24. METOCLOPRAMIDE [Concomitant]
     Active Substance: METOCLOPRAMIDE
     Indication: Product used for unknown indication
     Dosage: 2 DF, QD
     Route: 065
  25. METOCLOPRAMIDE [Concomitant]
     Active Substance: METOCLOPRAMIDE
     Dosage: 3 UNK, QD
     Route: 048
  26. DOMPERIDONE [Concomitant]
     Active Substance: DOMPERIDONE
     Indication: Product used for unknown indication
     Dosage: 10 (MG/CO), TID
     Route: 065
  27. DOMPERIDONE [Concomitant]
     Active Substance: DOMPERIDONE
     Dosage: UNK UNK, TID
     Route: 048
  28. ASPIRIN [Concomitant]
     Active Substance: ASPIRIN
     Indication: Product used for unknown indication
     Dosage: UNK
     Route: 065
  29. PANCREATIN [Concomitant]
     Active Substance: PANCRELIPASE
     Indication: Product used for unknown indication
     Dosage: UNK
     Route: 065
  30. PANTOPRAZOLE SODIUM [Concomitant]
     Active Substance: PANTOPRAZOLE SODIUM
     Indication: Product used for unknown indication
     Dosage: UNK
     Route: 065
     Dates: start: 20201106
  31. PANTOPRAZOLE SODIUM [Concomitant]
     Active Substance: PANTOPRAZOLE SODIUM
     Indication: Product used for unknown indication
     Dosage: UNK
     Route: 065

REACTIONS (18)
  - Diarrhoea [Recovered/Resolved]
  - Vomiting [Recovered/Resolved]
  - Body temperature decreased [Recovered/Resolved]
  - Blood pressure systolic decreased [Recovered/Resolved]
  - Somnolence [Recovered/Resolved]
  - Hypotension [Recovered/Resolved]
  - Blood pressure systolic increased [Recovered/Resolved]
  - Vomiting [Recovered/Resolved]
  - Type 2 diabetes mellitus [Recovered/Resolved]
  - Pollakiuria [Recovered/Resolved]
  - Hyperhidrosis [Recovered/Resolved]
  - Thirst [Recovered/Resolved]
  - Polydipsia [Recovered/Resolved]
  - Polyuria [Recovered/Resolved]
  - Needle issue [Unknown]
  - Impaired gastric emptying [Recovered/Resolved]
  - Pain [Recovered/Resolved]
  - Pruritus [Recovered/Resolved]

NARRATIVE: CASE EVENT DATE: 20160205
